FAERS Safety Report 9798655 (Version 1)
Quarter: 2014Q1

REPORT INFORMATION
  Report Type: Spontaneous
  Country: US (occurrence: US)
  Receive Date: 20140106
  Receipt Date: 20140106
  Transmission Date: 20141002
  Serious: No
  Sender: FDA-Public Use
  Company Number: US-GILEAD-2010-0029619

PATIENT
  Sex: Female
  Weight: 67.13 kg

DRUGS (10)
  1. LETAIRIS [Suspect]
     Indication: PULMONARY ARTERIAL HYPERTENSION
     Route: 048
     Dates: start: 20081003
  2. LASIX [Concomitant]
  3. VITAMIN D [Concomitant]
  4. FISH OIL [Concomitant]
  5. SPIRONOLACTONE [Concomitant]
  6. SYNTHROID [Concomitant]
  7. A-Z MULTIVITAMIN [Concomitant]
  8. OYSTER SHELL CAL +D [Concomitant]
  9. GLUCOSAMINE [Concomitant]
  10. ADULT LOW DOSE ASPIRIN [Concomitant]

REACTIONS (1)
  - Fatigue [Unknown]
